FAERS Safety Report 18145514 (Version 1)
Quarter: 2020Q3

REPORT INFORMATION
  Report Type: Spontaneous
  Country: PL (occurrence: PL)
  Receive Date: 20200813
  Receipt Date: 20200813
  Transmission Date: 20201103
  Serious: Yes (Other)
  Sender: FDA-Public Use
  Company Number: PL-ASTRAZENECA-2020SE98713

PATIENT
  Age: 67 Year
  Sex: Male

DRUGS (8)
  1. PROSTAMNIC [Concomitant]
  2. DIUVER [Concomitant]
     Active Substance: TORSEMIDE
  3. BRILIQUE [Suspect]
     Active Substance: TICAGRELOR
     Indication: MYOCARDIAL INFARCTION
     Route: 048
     Dates: start: 20200401
  4. CONTROLOC [Concomitant]
     Active Substance: PANTOPRAZOLE SODIUM
     Dosage: 1X1 FASTING
  5. METOCARD ZK [Concomitant]
     Active Substance: METOPROLOL TARTRATE
     Dosage: 1X MORNING, HALF IN THE EVENING
  6. ACARD [Concomitant]
     Active Substance: ASPIRIN
  7. ZOFENIL [Concomitant]
     Active Substance: ZOFENOPRIL
  8. ROSUTROX [Concomitant]

REACTIONS (4)
  - Pneumonia [Recovered/Resolved]
  - Parosmia [Not Recovered/Not Resolved]
  - Cough [Unknown]
  - Taste disorder [Not Recovered/Not Resolved]

NARRATIVE: CASE EVENT DATE: 20200401
